FAERS Safety Report 13984766 (Version 1)
Quarter: 2017Q3

REPORT INFORMATION
  Report Type: Spontaneous
  Country: IN (occurrence: US)
  Receive Date: 20170918
  Receipt Date: 20170918
  Transmission Date: 20171128
  Serious: Yes (Disabling, Other)
  Sender: FDA-Public Use
  Company Number: US-TEVA-806223USA

PATIENT
  Sex: Male

DRUGS (1)
  1. NALTREXONE HYDROCHLORIDE TABLET 50MG [Suspect]
     Active Substance: NALTREXONE HYDROCHLORIDE
     Route: 065
     Dates: end: 20150307

REACTIONS (17)
  - Neck injury [Unknown]
  - Head injury [Unknown]
  - Dizziness [Unknown]
  - Stress [Unknown]
  - Anxiety [Unknown]
  - Back injury [Unknown]
  - Disorientation [Unknown]
  - Loss of consciousness [Unknown]
  - Skeletal injury [Unknown]
  - Depression [Unknown]
  - Nausea [Unknown]
  - Asthenia [Unknown]
  - Fall [Unknown]
  - Vomiting [Unknown]
  - Back pain [Unknown]
  - Presyncope [Unknown]
  - Tenderness [Unknown]

NARRATIVE: CASE EVENT DATE: 20150307
